FAERS Safety Report 25071699 (Version 1)
Quarter: 2025Q1

REPORT INFORMATION
  Report Type: Spontaneous
  Country: US (occurrence: US)
  Receive Date: 20250313
  Receipt Date: 20250313
  Transmission Date: 20250408
  Serious: No
  Sender: BAXTER
  Company Number: US-BAXTER-2025BAX012437

PATIENT

DRUGS (1)
  1. NOREPINEPHRINE BITARTRATE [Suspect]
     Active Substance: NOREPINEPHRINE BITARTRATE
     Route: 065

REACTIONS (2)
  - Drug ineffective [Unknown]
  - Device infusion issue [Unknown]

NARRATIVE: CASE EVENT DATE: 20250212
